FAERS Safety Report 25332782 (Version 1)
Quarter: 2025Q2

REPORT INFORMATION
  Report Type: Spontaneous
  Country: US (occurrence: US)
  Receive Date: 20250519
  Receipt Date: 20250519
  Transmission Date: 20250717
  Serious: No
  Sender: SANOFI AVENTIS
  Company Number: US-SA-2025SA141124

PATIENT
  Age: 60 Year
  Sex: Male

DRUGS (27)
  1. DUPIXENT [Suspect]
     Active Substance: DUPILUMAB
     Indication: Nasal polyps
     Route: 058
     Dates: start: 20240802
  2. DUPIXENT [Suspect]
     Active Substance: DUPILUMAB
     Indication: Eczema
  3. DUPIXENT [Suspect]
     Active Substance: DUPILUMAB
     Indication: Asthma
  4. NUCALA [Concomitant]
     Active Substance: MEPOLIZUMAB
  5. Cordyceps militaris [Concomitant]
  6. L-GLUTAMINE [Concomitant]
     Active Substance: GLUTAMINE
  7. TESTOSTERONE [Concomitant]
     Active Substance: TESTOSTERONE
  8. VITAMIN C [Concomitant]
     Active Substance: ASCORBIC ACID
  9. IBUPROFEN [Concomitant]
     Active Substance: IBUPROFEN
  10. RANOLAZINE [Concomitant]
     Active Substance: RANOLAZINE
  11. IVERMECTIN [Concomitant]
     Active Substance: IVERMECTIN
  12. TYLENOL [Concomitant]
     Active Substance: ACETAMINOPHEN
  13. OMEPRAZOLE [Concomitant]
     Active Substance: OMEPRAZOLE
  14. LORATADINE [Concomitant]
     Active Substance: LORATADINE
  15. ALOE VERA LEAF [Concomitant]
     Active Substance: ALOE VERA LEAF
  16. ALBUTEROL [Concomitant]
     Active Substance: ALBUTEROL
  17. BIOTIN [Concomitant]
     Active Substance: BIOTIN
  18. CATALASE (BOS TAURUS) [Concomitant]
     Active Substance: CATALASE (BOS TAURUS)
  19. SYMBICORT [Concomitant]
     Active Substance: BUDESONIDE\FORMOTEROL FUMARATE DIHYDRATE
  20. DIETARY SUPPLEMENT\HERBALS\MILK THISTLE [Concomitant]
     Active Substance: MILK THISTLE
  21. TRIAMCINOLONE [Concomitant]
     Active Substance: TRIAMCINOLONE
  22. FISH OIL [Concomitant]
     Active Substance: FISH OIL
  23. MUPIROCIN [Concomitant]
     Active Substance: MUPIROCIN
  24. ASPIRIN [Concomitant]
     Active Substance: ASPIRIN
  25. COENZYME Q10 [Concomitant]
     Active Substance: DIETARY SUPPLEMENT\UBIDECARENONE
  26. POTASSIUM [Concomitant]
     Active Substance: POTASSIUM
  27. COLLAGEN [Concomitant]
     Active Substance: COLLAGEN

REACTIONS (3)
  - Pain [Unknown]
  - Asthma [Unknown]
  - Drug ineffective [Unknown]

NARRATIVE: CASE EVENT DATE: 20250514
